FAERS Safety Report 5314210-2 (Version None)
Quarter: 2007Q2

REPORT INFORMATION
  Report Type: 
  Country: None (occurrence: None)
  Receive Date: 20070426
  Receipt Date: 20070416
  Transmission Date: 20071010
  Serious: Yes (Life-Threatening, Hospitalization)
  Sender: FDA-Public Use
  Company Number: 6032196

PATIENT
  Age: 60 Year
  Sex: Female

DRUGS (4)
  1. BISOPROLOL FUMARATE [Suspect]
     Indication: HYPERTENSION
     Dosage: 2,5 MG ; ORAL
     Route: 048
     Dates: start: 20070323
  2. BENDROFLUAZIDE (BENDROFLUMETHIAZIDE) [Concomitant]
  3. LERCANIDIPINE [Concomitant]
  4. RAMIPRIL [Concomitant]

REACTIONS (2)
  - BRONCHOSPASM [None]
  - PULMONARY OEDEMA [None]
